FAERS Safety Report 9128872 (Version 1)
Quarter: 2013Q1

REPORT INFORMATION
  Report Type: Spontaneous
  Country: US (occurrence: US)
  Receive Date: 20130228
  Receipt Date: 20130228
  Transmission Date: 20140127
  Serious: Yes (Other)
  Sender: FDA-Public Use
  Company Number: US-PFIZER INC-2013066792

PATIENT
  Sex: Male

DRUGS (2)
  1. BOSULIF [Suspect]
     Dosage: UNK
  2. CARDIZEM [Suspect]
     Dosage: UNK

REACTIONS (1)
  - Cardiac failure congestive [Unknown]
